FAERS Safety Report 8487495-1 (Version None)
Quarter: 2012Q2

REPORT INFORMATION
  Report Type: 
  Country: None (occurrence: None)
  Receive Date: 20120627
  Receipt Date: 20120615
  Transmission Date: 20120825
  Serious: Yes (Hospitalization)
  Sender: FDA-Public Use
  Company Number: AXC-2012-000275

PATIENT
  Age: 36 Year
  Sex: Female

DRUGS (2)
  1. URSODIOL [Suspect]
     Indication: PRODUCT USED FOR UNKNOWN INDICATION
     Dosage: 300 MG, QD, ORAL
     Route: 048
     Dates: start: 20120519
  2. MAGLAX (MAGNESIUM OXIDE) [Concomitant]

REACTIONS (2)
  - HEPATIC FUNCTION ABNORMAL [None]
  - MATERNAL EXPOSURE DURING PREGNANCY [None]
